FAERS Safety Report 22259819 (Version 3)
Quarter: 2023Q4

REPORT INFORMATION
  Report Type: Report from Study
  Country: CA (occurrence: CA)
  Receive Date: 20230427
  Receipt Date: 20231120
  Transmission Date: 20240110
  Serious: Yes (Other)
  Sender: FDA-Public Use
  Company Number: CA-TAKEDA-2023TUS019883

PATIENT
  Age: 53 Year
  Sex: Male

DRUGS (5)
  1. VEDOLIZUMAB [Suspect]
     Active Substance: VEDOLIZUMAB
     Indication: Colitis ulcerative
     Dosage: 300 MILLIGRAM
     Route: 042
     Dates: start: 20220329
  2. VEDOLIZUMAB [Suspect]
     Active Substance: VEDOLIZUMAB
     Dosage: 300 MILLIGRAM
     Route: 042
  3. VEDOLIZUMAB [Suspect]
     Active Substance: VEDOLIZUMAB
     Dosage: 300 MILLIGRAM, Q6WEEKS
     Route: 042
     Dates: start: 20231115
  4. PENTASA [Concomitant]
     Active Substance: MESALAMINE
     Dosage: 2 MILLIGRAM
     Dates: start: 202110
  5. PENTASA [Concomitant]
     Active Substance: MESALAMINE
     Dosage: 4 MILLIGRAM
     Route: 048
     Dates: start: 20220302

REACTIONS (4)
  - Colitis ulcerative [Unknown]
  - Sinus disorder [Unknown]
  - Off label use [Unknown]
  - Rash erythematous [Unknown]

NARRATIVE: CASE EVENT DATE: 20221101
